FAERS Safety Report 19941468 (Version 1)
Quarter: 2021Q4

REPORT INFORMATION
  Report Type: Spontaneous
  Country: US (occurrence: US)
  Receive Date: 20211006
  Receipt Date: 20211006
  Transmission Date: 20220303
  Serious: No
  Sender: FDA-Public Use
  Company Number: None

PATIENT
  Age: 64 Year
  Sex: Male

DRUGS (1)
  1. STIVARGA [Suspect]
     Active Substance: REGORAFENIB

REACTIONS (8)
  - Physical product label issue [None]
  - Product dose omission issue [None]
  - Extra dose administered [None]
  - Product label issue [None]
  - Product use issue [None]
  - Product packaging issue [None]
  - Product communication issue [None]
  - Packaging design issue [None]
